FAERS Safety Report 16847937 (Version 1)
Quarter: 2019Q3

REPORT INFORMATION
  Report Type: Spontaneous
  Country: GB (occurrence: GB)
  Receive Date: 20190924
  Receipt Date: 20190924
  Transmission Date: 20191005
  Serious: Yes (Other)
  Sender: FDA-Public Use
  Company Number: GB-AUROBINDO-AUR-APL-2019-061526

PATIENT
  Age: 25 Year
  Sex: Male
  Weight: 110 kg

DRUGS (1)
  1. MIRTAZAPINE. [Suspect]
     Active Substance: MIRTAZAPINE
     Indication: DEPRESSION
     Dosage: 45 MILLIGRAM
     Route: 048
     Dates: start: 20180607

REACTIONS (3)
  - Somnambulism [Not Recovered/Not Resolved]
  - Sleep talking [Unknown]
  - Abnormal dreams [Unknown]

NARRATIVE: CASE EVENT DATE: 201807
